FAERS Safety Report 15262041 (Version 1)
Quarter: 2018Q3

REPORT INFORMATION
  Report Type: Spontaneous
  Country: CN (occurrence: CN)
  Receive Date: 20180809
  Receipt Date: 20180809
  Transmission Date: 20181010
  Serious: Yes (Other)
  Sender: FDA-Public Use
  Company Number: CN-DSJP-DSJ-2018-135795

PATIENT

DRUGS (4)
  1. TORSEMIDE. [Concomitant]
     Active Substance: TORSEMIDE
     Indication: DRUG THERAPY
     Dosage: 10 MG, BID
     Route: 048
     Dates: start: 20180511, end: 20180522
  2. TAZOCIN [Concomitant]
     Active Substance: PIPERACILLIN SODIUM\TAZOBACTAM SODIUM
     Indication: DRUG THERAPY
     Dosage: 4.5 G, BID
     Route: 041
     Dates: start: 20180509, end: 20180517
  3. TORSEMIDE. [Concomitant]
     Active Substance: TORSEMIDE
     Indication: DRUG THERAPY
     Dosage: 20 MG, QD
     Route: 030
     Dates: start: 20180506, end: 20180511
  4. OLMESARTAN MEDOXOMIL. [Suspect]
     Active Substance: OLMESARTAN MEDOXOMIL
     Indication: DRUG THERAPY
     Dosage: 20 MG, QD
     Route: 048
     Dates: start: 20180506, end: 20180517

REACTIONS (1)
  - Renal impairment [Recovering/Resolving]

NARRATIVE: CASE EVENT DATE: 20180509
